FAERS Safety Report 17688039 (Version 2)
Quarter: 2020Q2

REPORT INFORMATION
  Report Type: Report from Study
  Country: None (occurrence: NL)
  Receive Date: 20200421
  Receipt Date: 20200622
  Transmission Date: 20200714
  Serious: Yes (Other)
  Sender: FDA-Public Use
  Company Number: NL-ABBVIE-16P-114-1609851-00

PATIENT
  Age: 39 Year
  Sex: Female

DRUGS (5)
  1. DUODOPA [Suspect]
     Active Substance: CARBIDOPA\LEVODOPA
     Route: 050
  2. DUODOPA [Suspect]
     Active Substance: CARBIDOPA\LEVODOPA
     Dosage: MORNING DOSE 10.5, CONTINUOUS DOSE 2.6, EXTRA DOSE 3.0
     Route: 050
  3. DUODOPA [Suspect]
     Active Substance: CARBIDOPA\LEVODOPA
     Indication: PARKINSON^S DISEASE
     Dosage: MORNING DOSE 10.5, CONTINUOUS DOSE 2.6, EXTRA DOSE 3.0
     Route: 050
     Dates: start: 20151214, end: 20170125
  4. LEVODOPA [Concomitant]
     Active Substance: LEVODOPA
     Indication: PRODUCT USED FOR UNKNOWN INDICATION
     Route: 048
  5. MOVICOLON [Concomitant]
     Active Substance: POLYETHYLENE GLYCOL 3350\POTASSIUM CHLORIDE\SODIUM BICARBONATE\SODIUM CHLORIDE
     Indication: PRODUCT USED FOR UNKNOWN INDICATION
     Route: 065

REACTIONS (25)
  - Cataract [Not Recovered/Not Resolved]
  - Mobility decreased [Unknown]
  - Stoma site discharge [Recovered/Resolved]
  - Stoma site pain [Not Recovered/Not Resolved]
  - Bradykinesia [Not Recovered/Not Resolved]
  - Gastrointestinal fistula [Unknown]
  - Streptococcal infection [Not Recovered/Not Resolved]
  - Gastrointestinal mucosa hyperaemia [Recovering/Resolving]
  - Stoma site inflammation [Not Recovered/Not Resolved]
  - On and off phenomenon [Not Recovered/Not Resolved]
  - Visual acuity reduced [Not Recovered/Not Resolved]
  - Vitreous floaters [Recovering/Resolving]
  - Fistula inflammation [Not Recovered/Not Resolved]
  - Retinal disorder [Not Recovered/Not Resolved]
  - Condition aggravated [Recovering/Resolving]
  - Oedema mucosal [Recovering/Resolving]
  - Abdominal pain upper [Not Recovered/Not Resolved]
  - Dyskinesia [Not Recovered/Not Resolved]
  - Medical device site scab [Not Recovered/Not Resolved]
  - Tremor [Not Recovered/Not Resolved]
  - Salivary hypersecretion [Not Recovered/Not Resolved]
  - Muscle spasms [Not Recovered/Not Resolved]
  - Malaise [Not Recovered/Not Resolved]
  - Stoma site irritation [Not Recovered/Not Resolved]
  - Stoma site discharge [Not Recovered/Not Resolved]

NARRATIVE: CASE EVENT DATE: 201606
